FAERS Safety Report 4635328-3 (Version None)
Quarter: 2005Q2

REPORT INFORMATION
  Report Type: 
  Country: None (occurrence: None)
  Receive Date: 20050411
  Receipt Date: 20050330
  Transmission Date: 20051028
  Serious: Yes (Life-Threatening, Other)
  Sender: FDA-Public Use
  Company Number: HQWYE622501APR05

PATIENT
  Age: 35 Month
  Sex: Male

DRUGS (2)
  1. PROPRANOLOL HYDROCHLORIDE [Suspect]
     Indication: AORTIC STENOSIS
     Dosage: 20 MG 2X PER 1 DAY; ORAL
     Route: 048
     Dates: start: 20041001, end: 20050301
  2. ASPEGIC 1000 [Concomitant]

REACTIONS (2)
  - CONVULSION [None]
  - HYPOGLYCAEMIA [None]
